FAERS Safety Report 11221301 (Version 1)
Quarter: 2015Q2

REPORT INFORMATION
  Report Type: Report from Study
  Country: US (occurrence: US)
  Receive Date: 20150626
  Receipt Date: 20150626
  Transmission Date: 20150821
  Serious: Yes (Death, Hospitalization, Other)
  Sender: FDA-Public Use
  Company Number: US-BIOGENIDEC-2015BI084087

PATIENT
  Age: 68 Year
  Sex: Male

DRUGS (1)
  1. TYSABRI [Suspect]
     Active Substance: NATALIZUMAB
     Indication: MULTIPLE SCLEROSIS
     Route: 042
     Dates: start: 20061228, end: 20150512

REACTIONS (5)
  - Cerebrovascular accident [Unknown]
  - Neoplasm malignant [Unknown]
  - Pneumonia [Fatal]
  - Weight decreased [Unknown]
  - Lung disorder [Fatal]

NARRATIVE: CASE EVENT DATE: 20150521
